FAERS Safety Report 6129331-4 (Version None)
Quarter: 2009Q1

REPORT INFORMATION
  Report Type: 
  Country: None (occurrence: None)
  Receive Date: 20090324
  Receipt Date: 20090319
  Transmission Date: 20090719
  Serious: Yes (Death, Hospitalization, Other)
  Sender: FDA-Public Use
  Company Number: NL-BAYER-200831708GPV

PATIENT
  Age: 58 Year
  Sex: Male

DRUGS (2)
  1. NEXAVAR [Suspect]
     Indication: METASTATIC RENAL CELL CARCINOMA
     Dosage: TOTAL DAILY DOSE: 400 MG  UNIT DOSE: 200 MG
     Route: 048
     Dates: start: 20081031, end: 20090128
  2. NEXAVAR [Suspect]
     Dosage: AS USED: 200/400 MG  UNIT DOSE: 200 MG
     Route: 048
     Dates: start: 20090128, end: 20090217

REACTIONS (18)
  - ANOREXIA [None]
  - APNOEA [None]
  - ARRHYTHMIA [None]
  - ATRIAL FIBRILLATION [None]
  - CHEST DISCOMFORT [None]
  - DIARRHOEA [None]
  - DYSPHAGIA [None]
  - DYSPNOEA [None]
  - ERYTHEMA [None]
  - FATIGUE [None]
  - HYPERTENSION [None]
  - HYPOTHYROIDISM [None]
  - PAIN IN EXTREMITY [None]
  - PLEURAL EFFUSION [None]
  - RASH MACULAR [None]
  - RENAL CELL CARCINOMA [None]
  - VOMITING [None]
  - WEIGHT DECREASED [None]
